FAERS Safety Report 10784916 (Version 1)
Quarter: 2015Q1

REPORT INFORMATION
  Report Type: Spontaneous
  Country: US (occurrence: US)
  Receive Date: 20150211
  Receipt Date: 20150211
  Transmission Date: 20150721
  Serious: No
  Sender: FDA-Public Use
  Company Number: US-GLAXOSMITHKLINE-A1063743A

PATIENT

DRUGS (1)
  1. LAMICTAL [Suspect]
     Active Substance: LAMOTRIGINE
     Indication: PRODUCT USED FOR UNKNOWN INDICATION
     Dosage: STARTED ON 150 MG TABLET, THEN CHANGED TO 200 MG TABLET, APPEARED TO BE BACK ON 200 MG AT TIME [...]
     Route: 065
     Dates: start: 20090629

REACTIONS (1)
  - Memory impairment [Unknown]
